FAERS Safety Report 4635195-8 (Version None)
Quarter: 2005Q2

REPORT INFORMATION
  Report Type: 
  Country: None (occurrence: None)
  Receive Date: 20050414
  Receipt Date: 20050202
  Transmission Date: 20051028
  Serious: Yes (Hospitalization)
  Sender: FDA-Public Use
  Company Number: DE-BOEHRINGER INGELHEIM PHARMACEUTICALS, INC.-2005-DE-00412DE

PATIENT
  Age: 51 Year
  Sex: Female

DRUGS (12)
  1. MICARDIS [Suspect]
     Dates: end: 20031021
  2. TREVILOR [Concomitant]
     Dates: start: 20030317, end: 20030323
  3. TREVILOR [Concomitant]
     Dates: start: 20030324, end: 20031015
  4. TREVILOR [Concomitant]
     Dates: start: 20031016, end: 20031021
  5. LEPONEX [Concomitant]
     Dosage: 12,5 - 50 MG
     Dates: start: 20031006, end: 20031010
  6. LEPONEX [Concomitant]
     Dosage: 75 - 100 MG
     Dates: start: 20031011, end: 20031014
  7. LEPONEX [Concomitant]
     Dates: start: 20031015
  8. STANGYL [Concomitant]
     Dates: start: 20030925, end: 20031020
  9. LASIX [Concomitant]
     Dates: start: 20031011, end: 20031013
  10. LASIX [Concomitant]
     Dates: start: 20031014, end: 20031021
  11. DELIX [Concomitant]
     Dates: start: 20031014, end: 20031018
  12. DELIX [Concomitant]
     Dates: start: 20031019, end: 20031021

REACTIONS (7)
  - CIRCULATORY COLLAPSE [None]
  - DIARRHOEA [None]
  - GASTROINTESTINAL INFECTION [None]
  - HEART RATE INCREASED [None]
  - HYPERHIDROSIS [None]
  - LOSS OF CONSCIOUSNESS [None]
  - SYNCOPE [None]
